FAERS Safety Report 7146396-1 (Version None)
Quarter: 2010Q4

REPORT INFORMATION
  Report Type: 
  Country: None (occurrence: None)
  Receive Date: 20101208
  Receipt Date: 20100503
  Transmission Date: 20110411
  Serious: No
  Sender: FDA-Public Use
  Company Number: US-BRISTOL-MYERS SQUIBB COMPANY-15087927

PATIENT
  Age: 54 Year
  Sex: Female

DRUGS (6)
  1. PRAVACHOL [Suspect]
     Indication: BLOOD CHOLESTEROL INCREASED
     Dosage: DURATION OF THERAPY:3-4 MONTHS.
  2. LOPRESSOR [Concomitant]
  3. CHEMOTHERAPY [Concomitant]
  4. OXALIPLATIN [Concomitant]
  5. LEUCOVORIN [Concomitant]
  6. FLUOROURACIL [Concomitant]

REACTIONS (4)
  - FACIAL PAIN [None]
  - PAIN IN EXTREMITY [None]
  - PAIN IN JAW [None]
  - TOOTHACHE [None]
